FAERS Safety Report 6318326-3 (Version None)
Quarter: 2009Q3

REPORT INFORMATION
  Report Type: 
  Country: None (occurrence: None)
  Receive Date: 20090821
  Receipt Date: 20090813
  Transmission Date: 20100115
  Serious: Yes (Death, Other)
  Sender: FDA-Public Use
  Company Number: US-PFIZER INC-2009202516

PATIENT
  Age: 28 Year
  Sex: Male
  Weight: 90.703 kg

DRUGS (4)
  1. XANAX [Suspect]
  2. OXYCONTIN [Suspect]
     Indication: BACK PAIN
     Dosage: 80 MG, UNK
  3. ALCOHOL [Suspect]
  4. OXYCODONE [Suspect]

REACTIONS (3)
  - BLOOD ALCOHOL INCREASED [None]
  - DEATH [None]
  - DRUG DEPENDENCE [None]
